FAERS Safety Report 6480196-0 (Version None)
Quarter: 2009Q4

REPORT INFORMATION
  Report Type: 
  Country: None (occurrence: None)
  Receive Date: 20091119
  Receipt Date: 20090803
  Transmission Date: 20100525
  Serious: No
  Sender: FDA-Public Use
  Company Number: WAES 0908USA00400

PATIENT
  Age: 62 Year
  Sex: Female

DRUGS (4)
  1. JANUVIA [Suspect]
     Indication: BLOOD GLUCOSE
     Dosage: 100 MG/DAILY/PO
     Route: 048
     Dates: start: 20090629
  2. LEVEMIR [Concomitant]
  3. NOVOLOG [Concomitant]
  4. NOVOLOG MIX 70/30 [Concomitant]

REACTIONS (2)
  - OEDEMA PERIPHERAL [None]
  - OFF LABEL USE [None]
